FAERS Safety Report 21393505 (Version 6)
Quarter: 2023Q2

REPORT INFORMATION
  Report Type: Spontaneous
  Country: PE (occurrence: PE)
  Receive Date: 20220929
  Receipt Date: 20230628
  Transmission Date: 20230721
  Serious: Yes (Other)
  Sender: FDA-Public Use
  Company Number: PE-PFIZER INC-PV202200071277

PATIENT
  Age: 63 Year
  Sex: Female

DRUGS (1)
  1. ENBREL [Suspect]
     Active Substance: ETANERCEPT
     Indication: Product used for unknown indication
     Dosage: UNK
     Route: 058

REACTIONS (12)
  - Diabetes mellitus [Unknown]
  - Gait inability [Unknown]
  - Arthralgia [Unknown]
  - Osteoarthritis [Unknown]
  - Pain in extremity [Unknown]
  - Skin discolouration [Unknown]
  - Blister [Unknown]
  - Sensitivity to weather change [Unknown]
  - Product dose omission issue [Unknown]
  - Peripheral swelling [Unknown]
  - Psoriasis [Unknown]
  - COVID-19 [Recovered/Resolved]

NARRATIVE: CASE EVENT DATE: 20200101
